FAERS Safety Report 5893482-X (Version None)
Quarter: 2008Q3

REPORT INFORMATION
  Report Type: 
  Country: None (occurrence: None)
  Receive Date: 20080923
  Receipt Date: 20080922
  Transmission Date: 20090109
  Serious: Yes (Hospitalization)
  Sender: FDA-Public Use
  Company Number: US-BRISTOL-MYERS SQUIBB COMPANY-14343669

PATIENT
  Age: 51 Year
  Sex: Female
  Weight: 69 kg

DRUGS (4)
  1. PACLITAXEL [Suspect]
     Indication: CHEMOTHERAPY
     Route: 042
     Dates: start: 20080812, end: 20080812
  2. CARBOPLATIN [Suspect]
     Indication: CHEMOTHERAPY
     Route: 042
     Dates: start: 20080812, end: 20080812
  3. NEULASTA [Suspect]
     Indication: CHEMOTHERAPY
     Dosage: PREFILLED SYRINGE
     Route: 065
     Dates: start: 20080813, end: 20080813
  4. PLAVIX [Suspect]
     Indication: CAROTID ARTERY DISEASE
     Route: 065
     Dates: start: 20080806, end: 20080820

REACTIONS (1)
  - RECTAL HAEMORRHAGE [None]
